FAERS Safety Report 23663127 (Version 1)
Quarter: 2024Q1

REPORT INFORMATION
  Report Type: Spontaneous
  Country: US (occurrence: US)
  Receive Date: 20240322
  Receipt Date: 20240322
  Transmission Date: 20240410
  Serious: No
  Sender: FDA-Public Use
  Company Number: US-RECORDATI-2023004357

PATIENT

DRUGS (3)
  1. ISTURISA [Suspect]
     Active Substance: OSILODROSTAT PHOSPHATE
     Indication: Cushing^s syndrome
     Dosage: 1 MILLIGRAM, BID
     Route: 048
     Dates: start: 20230620
  2. MAGNESIUM OXIDE [Concomitant]
     Active Substance: MAGNESIUM OXIDE
     Indication: Product used for unknown indication
     Route: 065
  3. VITAMIN D3 [Concomitant]
     Active Substance: CHOLECALCIFEROL
     Indication: Product used for unknown indication
     Route: 065

REACTIONS (4)
  - Depression [Unknown]
  - Abdominal pain upper [Unknown]
  - Arthralgia [Not Recovered/Not Resolved]
  - Epigastric discomfort [Recovering/Resolving]

NARRATIVE: CASE EVENT DATE: 20230601
